FAERS Safety Report 4724604-1 (Version None)
Quarter: 2005Q3

REPORT INFORMATION
  Report Type: 
  Country: None (occurrence: None)
  Receive Date: 20050721
  Receipt Date: 20050708
  Transmission Date: 20060218
  Serious: Yes (Death)
  Sender: FDA-Public Use
  Company Number: 213550

PATIENT
  Age: 68 Year
  Sex: Male

DRUGS (10)
  1. RITUXAN [Suspect]
     Indication: PROPHYLAXIS AGAINST TRANSPLANT REJECTION
     Dosage: 50 MG, INTRAVENOUS; SEE IMAGE
     Route: 042
     Dates: start: 20050207, end: 20050207
  2. RITUXAN [Suspect]
     Indication: PROPHYLAXIS AGAINST TRANSPLANT REJECTION
     Dosage: 50 MG, INTRAVENOUS; SEE IMAGE
     Route: 042
     Dates: start: 20050225, end: 20050225
  3. RITUXAN [Suspect]
     Indication: PROPHYLAXIS AGAINST TRANSPLANT REJECTION
     Dosage: 50 MG, INTRAVENOUS; SEE IMAGE
     Route: 042
     Dates: start: 20050227, end: 20050227
  4. PROGRAF [Concomitant]
  5. CELLCEPT [Concomitant]
  6. SOLU-MEDROL [Concomitant]
  7. OMEPRAZOLE [Concomitant]
  8. ALPROSTADIL [Concomitant]
  9. DOPAMINE (DOPAMINE HYDROCHLORIDE) [Concomitant]
  10. DOBUTAMINE (DOBUTAMINE) [Concomitant]

REACTIONS (22)
  - ACIDOSIS [None]
  - ANAEMIA [None]
  - ANGIOPATHY [None]
  - ATHEROSCLEROSIS OBLITERANS [None]
  - BLOOD PRESSURE DECREASED [None]
  - BLOOD URINE [None]
  - CARDIO-RESPIRATORY ARREST [None]
  - CAROTID ARTERY THROMBOSIS [None]
  - CEREBRAL INFARCTION [None]
  - COMPLICATIONS OF TRANSPLANTED KIDNEY [None]
  - DIALYSIS [None]
  - DYSPNOEA [None]
  - HAEMATOMA [None]
  - HYPERVENTILATION [None]
  - INFUSION RELATED REACTION [None]
  - MYDRIASIS [None]
  - PO2 DECREASED [None]
  - RENAL TRANSPLANT [None]
  - SHOCK [None]
  - URINE OUTPUT DECREASED [None]
  - WOUND DRAINAGE [None]
  - WOUND HAEMORRHAGE [None]
